FAERS Safety Report 8251136-9 (Version None)
Quarter: 2012Q1

REPORT INFORMATION
  Report Type: 
  Country: None (occurrence: None)
  Receive Date: 20120328
  Receipt Date: 20120313
  Transmission Date: 20120608
  Serious: Yes (Other)
  Sender: FDA-Public Use
  Company Number: B0764809A

PATIENT
  Age: 42 Year

DRUGS (6)
  1. GEMCITABINE [Suspect]
     Indication: HODGKIN'S DISEASE
     Dosage: 1000 MG/M2 / TWICE PER DAY / INTRAVENOUS
     Route: 042
  2. RABBIT ANTITHYMOCYTE SERU (FORMULATION UNKNOWN) (RABBIT ANTITHYMOCYTE [Suspect]
     Indication: HODGKIN'S DISEASE
     Dosage: INTRAVENOUS
     Route: 042
  3. METHOTREXATE [Suspect]
     Indication: PROPHYLAXIS AGAINST GRAFT VERSUS HOST DISEASE
     Dosage: 5 MG
  4. MELPHALAN HYDROCHLORIDE [Suspect]
     Indication: HODGKIN'S DISEASE
     Dosage: 70 MG/M2 / TWICE PER DAY / INTRAVENOUS
     Route: 042
  5. FLUDARABINE PHOSPHATE [Suspect]
     Indication: HODGKIN'S DISEASE
     Dosage: 32 MG/M2 / FOUR TIMES PER DAY / INTRAVENOUS
     Route: 042
  6. TACROLIMUS [Suspect]
     Indication: PROPHYLAXIS AGAINST GRAFT VERSUS HOST DISEASE

REACTIONS (9)
  - NEPHROPATHY TOXIC [None]
  - PULMONARY TOXICITY [None]
  - GASTROINTESTINAL TOXICITY [None]
  - RESPIRATORY FAILURE [None]
  - TRANSPLANT REJECTION [None]
  - LUNG INFILTRATION [None]
  - SKIN TOXICITY [None]
  - MUCOSAL INFLAMMATION [None]
  - CARDIOTOXICITY [None]
